FAERS Safety Report 7197869-7 (Version None)
Quarter: 2010Q4

REPORT INFORMATION
  Report Type: 
  Country: None (occurrence: None)
  Receive Date: 20101227
  Receipt Date: 20101213
  Transmission Date: 20110411
  Serious: Yes (Death, Hospitalization)
  Sender: FDA-Public Use
  Company Number: ES-ROCHE-728531

PATIENT
  Age: 53 Year
  Sex: Female

DRUGS (2)
  1. XELODA [Suspect]
     Indication: BREAST CANCER STAGE IV
     Route: 048
     Dates: start: 20100325
  2. TYVERB [Suspect]
     Indication: BREAST CANCER STAGE IV
     Route: 048
     Dates: start: 20100325, end: 20100415

REACTIONS (6)
  - DEHYDRATION [None]
  - DIARRHOEA HAEMORRHAGIC [None]
  - HYPOKALAEMIA [None]
  - HYPONATRAEMIA [None]
  - PROCTITIS [None]
  - STOMATITIS [None]
